APPROVED DRUG PRODUCT: MICRAININ
Active Ingredient: ASPIRIN; MEPROBAMATE
Strength: 325MG;200MG
Dosage Form/Route: TABLET;ORAL
Application: A084978 | Product #001
Applicant: MEDPOINTE PHARMACEUTICALS MEDPOINTE HEALTHCARE INC
Approved: Approved Prior to Jan 1, 1982 | RLD: No | RS: No | Type: DISCN